FAERS Safety Report 8548736-5 (Version None)
Quarter: 2012Q3

REPORT INFORMATION
  Report Type: 
  Country: None (occurrence: None)
  Receive Date: 20120730
  Receipt Date: 20120725
  Transmission Date: 20120928
  Serious: Yes (Other)
  Sender: FDA-Public Use
  Company Number: PHEH2012US012905

PATIENT
  Age: 61 Year
  Sex: Male

DRUGS (2)
  1. TESTOSTERONE [Concomitant]
  2. SANDOSTATIN LAR [Suspect]
     Indication: PITUITARY TUMOUR
     Dosage: 20 MG EVERY 28 DAYS

REACTIONS (3)
  - DEPRESSION [None]
  - FATIGUE [None]
  - HYPOAESTHESIA [None]
